FAERS Safety Report 8257178-1 (Version None)
Quarter: 2012Q1

REPORT INFORMATION
  Report Type: 
  Country: None (occurrence: None)
  Receive Date: 20120330
  Receipt Date: 20120330
  Transmission Date: 20120608
  Serious: Yes (Other)
  Sender: FDA-Public Use
  Company Number: None

PATIENT
  Sex: Female
  Weight: 82.5547 kg

DRUGS (5)
  1. TOPIRAMATE [Suspect]
     Indication: FIBROMYALGIA
     Dosage: 52MG 1X/DA ORAL CAPLET 50MG 25MG/DAX2 ORAL CAPLET
     Route: 048
     Dates: start: 20120217, end: 20120222
  2. TOPIRAMATE [Suspect]
     Indication: FIBROMYALGIA
     Dosage: 52MG 1X/DA ORAL CAPLET 50MG 25MG/DAX2 ORAL CAPLET
     Route: 048
     Dates: start: 20120223, end: 20120227
  3. TYLENOL W/ CODEINE NO. 3 [Concomitant]
  4. ASPIRIN [Concomitant]
  5. T4 [Concomitant]

REACTIONS (19)
  - CONSTIPATION [None]
  - RHINORRHOEA [None]
  - IRRITABILITY [None]
  - DECREASED APPETITE [None]
  - FEELING OF DESPAIR [None]
  - COGNITIVE DISORDER [None]
  - WITHDRAWAL SYNDROME [None]
  - HOT FLUSH [None]
  - POOR QUALITY SLEEP [None]
  - INSOMNIA [None]
  - NAUSEA [None]
  - HYPOAESTHESIA [None]
  - CEREBROVASCULAR ACCIDENT [None]
  - PARAESTHESIA [None]
  - UNEVALUABLE EVENT [None]
  - HEADACHE [None]
  - HYPERHIDROSIS [None]
  - MOOD SWINGS [None]
  - EPISTAXIS [None]
